FAERS Safety Report 10451390 (Version 4)
Quarter: 2015Q4

REPORT INFORMATION
  Report Type: Spontaneous
  Country: JP (occurrence: JP)
  Receive Date: 20140912
  Receipt Date: 20151210
  Transmission Date: 20160304
  Serious: Yes (Life-Threatening, Hospitalization, Other)
  Sender: FDA-Public Use
  Company Number: JP-SPECTRUM PHARMACEUTICALS, INC.-14-Z-JP-00244

PATIENT
  Age: 64 Year
  Sex: Female
  Weight: 44 kg

DRUGS (9)
  1. ZEVALIN [Suspect]
     Active Substance: IBRITUMOMAB TIUXETAN
     Indication: B-CELL LYMPHOMA
     Dosage: 14.8 MBQ, SINGLE
     Route: 042
     Dates: start: 20110614, end: 20110614
  2. ZEVALIN [Suspect]
     Active Substance: IBRITUMOMAB TIUXETAN
     Dosage: UNK, SINGLE
     Route: 042
     Dates: start: 20110607, end: 20110607
  3. CYCLOPHOSPHAMIDE. [Suspect]
     Active Substance: CYCLOPHOSPHAMIDE
     Indication: B-CELL LYMPHOMA
     Dosage: UNKNOWN, AS PART OF R-CHOP, 6 CYCLES
     Route: 065
     Dates: start: 20100928, end: 20110117
  4. RITUXIMAB [Suspect]
     Active Substance: RITUXIMAB
     Indication: B-CELL LYMPHOMA
     Dosage: 250 MG/M2, SINGLE
     Route: 042
     Dates: start: 20110614, end: 20110614
  5. RITUXIMAB [Suspect]
     Active Substance: RITUXIMAB
     Dosage: UNKNOWN, AS PART OF R-CHOP, 6 CYCLES
     Route: 065
     Dates: start: 20100928, end: 20110117
  6. DOXORUBICIN [Suspect]
     Active Substance: DOXORUBICIN
     Indication: B-CELL LYMPHOMA
     Dosage: UNKNOWN, AS PART OF R-CHOP, 6 CYCLES
     Route: 065
     Dates: start: 20100928, end: 20110117
  7. RITUXIMAB [Suspect]
     Active Substance: RITUXIMAB
     Dosage: 250 MG/M2, SINGLE
     Route: 042
     Dates: start: 20110607, end: 20110607
  8. PREDNISOLONE                       /00016204/ [Suspect]
     Active Substance: PREDNISOLONE
     Indication: B-CELL LYMPHOMA
     Dosage: UNKNOWN, AS PART OF R-CHOP, 6 CYCLES
     Route: 065
     Dates: start: 20100928, end: 20110117
  9. VINCRISTINE [Suspect]
     Active Substance: VINCRISTINE
     Indication: B-CELL LYMPHOMA
     Dosage: UNKNOWN, AS PART OF R-CHOP, 6 CYCLES
     Route: 065
     Dates: start: 20100928, end: 20110117

REACTIONS (1)
  - Chronic myeloid leukaemia [Recovering/Resolving]

NARRATIVE: CASE EVENT DATE: 20120508
